FAERS Safety Report 12760187 (Version 4)
Quarter: 2020Q2

REPORT INFORMATION
  Report Type: Spontaneous
  Country: US (occurrence: US)
  Receive Date: 20160919
  Receipt Date: 20200414
  Transmission Date: 20200713
  Serious: Yes (Hospitalization)
  Sender: FDA-Public Use
  Company Number: US-JNJFOC-20160916209

PATIENT
  Age: 85 Year
  Sex: Female

DRUGS (3)
  1. XARELTO [Suspect]
     Active Substance: RIVAROXABAN
     Indication: CEREBROVASCULAR ACCIDENT PROPHYLAXIS
     Route: 048
     Dates: start: 20140516, end: 20150516
  2. XARELTO [Suspect]
     Active Substance: RIVAROXABAN
     Indication: THROMBOSIS PROPHYLAXIS
  3. XARELTO [Suspect]
     Active Substance: RIVAROXABAN
     Indication: ATRIAL FIBRILLATION
     Route: 048
     Dates: start: 20140416, end: 20150513

REACTIONS (5)
  - Petechiae [Recovering/Resolving]
  - Subarachnoid haemorrhage [Recovering/Resolving]
  - Haemorrhage intracranial [Recovering/Resolving]
  - Fall [Unknown]
  - Ischaemic stroke [Recovering/Resolving]

NARRATIVE: CASE EVENT DATE: 201505
